FAERS Safety Report 6654540-5 (Version None)
Quarter: 2010Q1

REPORT INFORMATION
  Report Type: 
  Country: None (occurrence: None)
  Receive Date: 20100326
  Receipt Date: 20100318
  Transmission Date: 20100710
  Serious: Yes (Hospitalization)
  Sender: FDA-Public Use
  Company Number: FR-PFIZER INC-2010034686

PATIENT
  Age: 96 Year
  Sex: Female

DRUGS (4)
  1. CELEBREX [Suspect]
     Dosage: 200 MG, UNK
     Dates: end: 20090914
  2. PIRACETAM [Suspect]
     Dosage: UNK
     Dates: end: 20090914
  3. DURAGESIC-100 [Suspect]
     Dosage: UNK
     Dates: start: 20090907, end: 20090914
  4. ESCITALOPRAM [Suspect]
     Dosage: UNK
     Dates: end: 20090914

REACTIONS (3)
  - ASTHENIA [None]
  - RESPIRATORY DISORDER [None]
  - SOMNOLENCE [None]
